FAERS Safety Report 5419926-5 (Version None)
Quarter: 2007Q3

REPORT INFORMATION
  Report Type: 
  Country: None (occurrence: None)
  Receive Date: 20070820
  Receipt Date: 20070810
  Transmission Date: 20080115
  Serious: Yes (Other)
  Sender: FDA-Public Use
  Company Number: JP-PFIZER INC-2007049297

PATIENT
  Sex: Female
  Weight: 37 kg

DRUGS (12)
  1. ATARAX [Suspect]
     Indication: URTICARIA
     Dosage: DAILY DOSE:25MG
     Route: 042
     Dates: start: 20070607, end: 20070607
  2. FRESH FROZEN PLASMA [Concomitant]
     Route: 042
     Dates: start: 20070607, end: 20070607
  3. ALLOPURINOL [Concomitant]
     Dosage: TEXT:UNKNOWN
     Route: 048
  4. CALCIUM CARBONATE [Concomitant]
     Dosage: TEXT:UNKNOWN
     Route: 048
  5. ALFAROL [Concomitant]
     Route: 048
  6. PROGRAF [Concomitant]
     Route: 048
     Dates: start: 20070526, end: 20070609
  7. CELLCEPT [Concomitant]
     Route: 048
     Dates: start: 20070526, end: 20070609
  8. MEDROL [Concomitant]
     Route: 048
     Dates: start: 20070526, end: 20070609
  9. CALONAL [Concomitant]
     Dosage: TEXT:UNKNOWN
     Route: 048
     Dates: start: 20070607, end: 20070707
  10. POLARAMINE [Concomitant]
     Dosage: TEXT:UNKNOWN
     Route: 048
     Dates: start: 20070607, end: 20070607
  11. RITUXIMAB [Concomitant]
     Dosage: TEXT:UNKNOWN
     Route: 042
     Dates: start: 20070607, end: 20070607
  12. IMMUNE GLOBULIN INTRAVENOUS (HUMAN) [Concomitant]
     Dosage: TEXT:UNKNOWN
     Route: 042
     Dates: start: 20070607, end: 20070607

REACTIONS (1)
  - EXTRAVASCULAR HAEMOLYSIS [None]
